FAERS Safety Report 6415397-0 (Version None)
Quarter: 2009Q4

REPORT INFORMATION
  Report Type: 
  Country: None (occurrence: None)
  Receive Date: 20091026
  Receipt Date: 20091026
  Transmission Date: 20100525
  Serious: No
  Sender: FDA-Public Use
  Company Number: None

PATIENT
  Age: 57 Year
  Sex: Male
  Weight: 79 kg

DRUGS (2)
  1. IODIXANOL [Suspect]
     Indication: CORONARY ARTERIAL STENT INSERTION
     Dates: start: 20090922, end: 20090922
  2. FENTANYL-100 [Suspect]
     Indication: CORONARY ARTERIAL STENT INSERTION
     Dates: start: 20090922, end: 20090922

REACTIONS (2)
  - ANGIOEDEMA [None]
  - URTICARIA [None]
